FAERS Safety Report 6668739-5 (Version None)
Quarter: 2010Q2

REPORT INFORMATION
  Report Type: 
  Country: None (occurrence: None)
  Receive Date: 20100401
  Receipt Date: 20100319
  Transmission Date: 20101027
  Serious: Yes (Hospitalization)
  Sender: FDA-Public Use
  Company Number: IT-2010-0112

PATIENT
  Age: 83 Year
  Sex: Male

DRUGS (2)
  1. NAVELBINE [Suspect]
     Indication: LYMPHOMA
     Dosage: 25 MG/M2 IV
     Route: 042
     Dates: start: 20090618, end: 20090702
  2. DELTACORTENE [Concomitant]

REACTIONS (6)
  - BACTERIAL SEPSIS [None]
  - BLOOD CULTURE POSITIVE [None]
  - CHOLECYSTITIS ACUTE [None]
  - ESCHERICHIA INFECTION [None]
  - KLEBSIELLA INFECTION [None]
  - LEUKOPENIA [None]
